FAERS Safety Report 5691927-1 (Version None)
Quarter: 2008Q1

REPORT INFORMATION
  Report Type: 
  Country: None (occurrence: None)
  Receive Date: 20080331
  Receipt Date: 20080319
  Transmission Date: 20080703
  Serious: Yes (Hospitalization)
  Sender: FDA-Public Use
  Company Number: 2008-00958

PATIENT
  Age: 77 Year
  Sex: Male
  Weight: 70 kg

DRUGS (4)
  1. VELCADE [Suspect]
     Indication: MULTIPLE MYELOMA
     Dates: start: 20071212, end: 20080114
  2. THALIDOMIDE [Suspect]
     Indication: MULTIPLE MYELOMA
     Dates: start: 20071212, end: 20080205
  3. MELPHALAN          (MELPHALAN) VIAL [Suspect]
     Indication: MULTIPLE MYELOMA
     Dates: start: 20071212, end: 20071215
  4. PREDNISONE TAB [Suspect]
     Indication: MULTIPLE MYELOMA

REACTIONS (3)
  - ATRIAL FIBRILLATION [None]
  - ELECTROCARDIOGRAM T WAVE INVERSION [None]
  - SYNCOPE [None]
